FAERS Safety Report 20773098 (Version 1)
Quarter: 2022Q2

REPORT INFORMATION
  Report Type: Spontaneous
  Country: US (occurrence: US)
  Receive Date: 20220502
  Receipt Date: 20220502
  Transmission Date: 20220721
  Serious: Yes (Hospitalization, Other)
  Sender: FDA-Public Use
  Company Number: US-AUROBINDO-AUR-APL-2021-039882

PATIENT
  Age: 66 Year
  Sex: Male
  Weight: 79 kg

DRUGS (1)
  1. EVOMELA [Suspect]
     Active Substance: MELPHALAN HYDROCHLORIDE
     Indication: Amyloidosis
     Dosage: 100 MILLIGRAM/SQ. METER
     Route: 042
     Dates: start: 20210907, end: 20210908

REACTIONS (4)
  - Febrile neutropenia [Unknown]
  - Diarrhoea [Unknown]
  - Fatigue [Unknown]
  - Product use in unapproved indication [Unknown]

NARRATIVE: CASE EVENT DATE: 20210917
